FAERS Safety Report 18992146 (Version 1)
Quarter: 2021Q1

REPORT INFORMATION
  Report Type: Spontaneous
  Country: US (occurrence: US)
  Receive Date: 20210310
  Receipt Date: 20210310
  Transmission Date: 20210420
  Serious: Yes (Hospitalization)
  Sender: FDA-Public Use
  Company Number: None

PATIENT
  Sex: Female

DRUGS (13)
  1. PANTOPRAZOLE [Concomitant]
     Active Substance: PANTOPRAZOLE
     Dates: start: 20200307
  2. BETAMETHASONE DIP LOT [Concomitant]
     Dates: start: 20190826
  3. FLUCONAZOLE. [Concomitant]
     Active Substance: FLUCONAZOLE
     Dates: start: 20190829
  4. GABAPENTIN. [Concomitant]
     Active Substance: GABAPENTIN
     Dates: start: 20200612
  5. NORTIPTYLIN [Concomitant]
     Dates: start: 20200910
  6. ORTHO TRI [Concomitant]
     Dates: start: 20200917
  7. PREDNISONE. [Concomitant]
     Active Substance: PREDNISONE
     Dates: start: 20200307
  8. GLATIRAMER [Suspect]
     Active Substance: GLATIRAMER
     Indication: MULTIPLE SCLEROSIS
     Dosage: ?          OTHER FREQUENCY:TIW;?
     Route: 058
     Dates: start: 20180620
  9. SELENIUM SUL LOTION [Concomitant]
     Dates: start: 20190826
  10. ARANELLE [Concomitant]
     Active Substance: ETHINYL ESTRADIOL\NORETHINDRONE
     Dates: start: 20190918
  11. BACLOFEN. [Concomitant]
     Active Substance: BACLOFEN
     Dates: start: 20200318
  12. TRIAMCINOLONE CRE [Concomitant]
     Dates: start: 20200903
  13. PREDNISONE. [Concomitant]
     Active Substance: PREDNISONE
     Dates: start: 20200307

REACTIONS (1)
  - Hospitalisation [None]
